FAERS Safety Report 24779414 (Version 1)
Quarter: 2024Q4

REPORT INFORMATION
  Report Type: Spontaneous
  Country: US (occurrence: US)
  Receive Date: 20241226
  Receipt Date: 20241226
  Transmission Date: 20250114
  Serious: Yes (Other)
  Sender: PFIZER
  Company Number: US-PFIZER INC-202200360353

PATIENT
  Age: 82 Year
  Sex: Female

DRUGS (1)
  1. METHOTREXATE SODIUM [Suspect]
     Active Substance: METHOTREXATE SODIUM
     Dosage: UNK

REACTIONS (4)
  - Chronic kidney disease [Unknown]
  - Dialysis related complication [Unknown]
  - Dehydration [Unknown]
  - Abdominal discomfort [Unknown]
